FAERS Safety Report 23932838 (Version 1)
Quarter: 2024Q2

REPORT INFORMATION
  Report Type: Spontaneous
  Country: US (occurrence: None)
  Receive Date: 20240601
  Receipt Date: 20240601
  Transmission Date: 20240716
  Serious: Yes (Life-Threatening)
  Sender: FDA-Public Use
  Company Number: None

PATIENT
  Age: 56 Year
  Sex: Female
  Weight: 81 kg

DRUGS (4)
  1. DIETARY SUPPLEMENT [Suspect]
     Active Substance: DIETARY SUPPLEMENT
     Indication: Arthralgia
     Dosage: 1 CAPSULE ORAL
     Route: 048
     Dates: start: 20240101, end: 20240405
  2. VIOXX [Suspect]
     Active Substance: ROFECOXIB
  3. AMLODIPINE [Concomitant]
  4. metropolol [Concomitant]

REACTIONS (3)
  - Product use in unapproved indication [None]
  - Product formulation issue [None]
  - Victim of crime [None]

NARRATIVE: CASE EVENT DATE: 20240401
